FAERS Safety Report 8141617-0 (Version None)
Quarter: 2012Q1

REPORT INFORMATION
  Report Type: 
  Country: None (occurrence: None)
  Receive Date: 20120216
  Receipt Date: 20120209
  Transmission Date: 20120608
  Serious: No
  Sender: FDA-Public Use
  Company Number: JP-JNJFOC-20111210061

PATIENT
  Age: 7 Decade
  Sex: Male

DRUGS (3)
  1. FENTANYL-100 [Suspect]
     Indication: CANCER PAIN
     Route: 062
  2. UNKNOWN MULTIPLE MEDICATION [Concomitant]
     Route: 065
  3. FENTANYL-100 [Suspect]
     Indication: PAIN
     Route: 062

REACTIONS (1)
  - PAROTITIS [None]
